FAERS Safety Report 5119933-6 (Version None)
Quarter: 2006Q3

REPORT INFORMATION
  Report Type: 
  Country: None (occurrence: None)
  Receive Date: 20060928
  Receipt Date: 20060921
  Transmission Date: 20061208
  Serious: Yes (Death)
  Sender: FDA-Public Use
  Company Number: 2006-147779-NL

PATIENT
  Age: 47 Year
  Sex: Male

DRUGS (2)
  1. MIRTAZAPINE [Suspect]
     Dosage: DF
  2. ZOPICLONE [Suspect]
     Dosage: DF

REACTIONS (4)
  - ALCOHOL USE [None]
  - BLOOD ALCOHOL INCREASED [None]
  - COMPLETED SUICIDE [None]
  - DRUG TOXICITY [None]
